FAERS Safety Report 8416662-8 (Version None)
Quarter: 2012Q2

REPORT INFORMATION
  Report Type: 
  Country: None (occurrence: None)
  Receive Date: 20120606
  Receipt Date: 20120524
  Transmission Date: 20120825
  Serious: Yes (Hospitalization, Other)
  Sender: FDA-Public Use
  Company Number: GB-TEVA-339527ISR

PATIENT
  Age: 72 Year
  Sex: Male

DRUGS (9)
  1. METFORMIN HCL [Concomitant]
  2. SIMVASTATIN [Concomitant]
  3. CLARITHROMYCIN [Suspect]
     Indication: LOWER RESPIRATORY TRACT INFECTION
     Route: 048
     Dates: start: 20120423, end: 20120430
  4. RAMIPRIL [Concomitant]
  5. ASPIRIN [Concomitant]
  6. GLIMEPIRIDE [Concomitant]
  7. DOXAZOSIN [Concomitant]
  8. FELODIPINE [Concomitant]
  9. ATENOLOL [Concomitant]

REACTIONS (9)
  - CHROMATURIA [None]
  - FAECES DISCOLOURED [None]
  - BLOOD BILIRUBIN ABNORMAL [None]
  - INTERNATIONAL NORMALISED RATIO INCREASED [None]
  - BLOOD ALKALINE PHOSPHATASE INCREASED [None]
  - PLATELET COUNT ABNORMAL [None]
  - ALANINE AMINOTRANSFERASE ABNORMAL [None]
  - JAUNDICE CHOLESTATIC [None]
  - GAMMA-GLUTAMYLTRANSFERASE ABNORMAL [None]
